FAERS Safety Report 23938992 (Version 2)
Quarter: 2024Q3

REPORT INFORMATION
  Report Type: Report from Study
  Country: US (occurrence: US)
  Receive Date: 20240604
  Receipt Date: 20240719
  Transmission Date: 20241016
  Serious: Yes (Death, Life-Threatening, Hospitalization, Other)
  Sender: GLAXOSMITHKLINE
  Company Number: US-GLAXOSMITHKLINE-US2024GSK069001

PATIENT

DRUGS (17)
  1. BUPROPION HYDROCHLORIDE [Suspect]
     Active Substance: BUPROPION HYDROCHLORIDE
     Indication: Product used for unknown indication
     Dosage: UNK
     Route: 048
  2. IRON [Suspect]
     Active Substance: IRON
     Indication: Product used for unknown indication
     Dosage: UNK
     Route: 048
  3. SPIRONOLACTONE [Suspect]
     Active Substance: SPIRONOLACTONE
     Indication: Product used for unknown indication
     Dosage: UNK
     Route: 048
  4. TRAZODONE [Suspect]
     Active Substance: TRAZODONE HYDROCHLORIDE
     Indication: Product used for unknown indication
     Dosage: UNK
     Route: 048
  5. ARIPIPRAZOLE [Suspect]
     Active Substance: ARIPIPRAZOLE
     Indication: Product used for unknown indication
     Dosage: UNK
     Route: 048
  6. FLUOXETINE [Suspect]
     Active Substance: FLUOXETINE HYDROCHLORIDE
     Indication: Product used for unknown indication
     Dosage: UNK
     Route: 048
  7. SERTRALINE [Suspect]
     Active Substance: SERTRALINE HYDROCHLORIDE
     Indication: Product used for unknown indication
     Dosage: UNK
     Route: 048
  8. ERGOCALCIFEROL [Suspect]
     Active Substance: ERGOCALCIFEROL
     Indication: Product used for unknown indication
     Dosage: UNK
     Route: 048
  9. LISDEXAMFETAMINE [Suspect]
     Active Substance: LISDEXAMFETAMINE
     Indication: Product used for unknown indication
     Dosage: UNK
  10. LORATADINE [Suspect]
     Active Substance: LORATADINE
     Indication: Product used for unknown indication
  11. BENZTROPINE [Suspect]
     Active Substance: BENZTROPINE
     Indication: Product used for unknown indication
     Dosage: UNK
  12. CYCLOBENZAPRINE [Suspect]
     Active Substance: CYCLOBENZAPRINE
     Indication: Product used for unknown indication
     Dosage: UNK
  13. ACETAZOLAMIDE [Suspect]
     Active Substance: ACETAZOLAMIDE
     Indication: Product used for unknown indication
     Dosage: UNK
  14. IBUPROFEN [Suspect]
     Active Substance: IBUPROFEN
     Indication: Product used for unknown indication
     Dosage: UNK
  15. HYDROXYZINE [Suspect]
     Active Substance: HYDROXYZINE HYDROCHLORIDE
     Indication: Product used for unknown indication
     Dosage: UNK
  16. MELOXICAM [Suspect]
     Active Substance: MELOXICAM
     Indication: Product used for unknown indication
     Dosage: UNK
  17. OMEPRAZOLE [Suspect]
     Active Substance: OMEPRAZOLE
     Indication: Product used for unknown indication
     Dosage: UNK

REACTIONS (25)
  - Cardiotoxicity [Fatal]
  - Cardiac arrest [Fatal]
  - Seizure [Unknown]
  - Ventricular arrhythmia [Unknown]
  - Hypotension [Unknown]
  - Abdominal discomfort [Unknown]
  - Lethargy [Unknown]
  - Tremor [Unknown]
  - Disturbance in attention [Unknown]
  - Somnolence [Unknown]
  - Generalised tonic-clonic seizure [Unknown]
  - Status epilepticus [Unknown]
  - Pulseless electrical activity [Unknown]
  - Hyperlactacidaemia [Unknown]
  - Haemodynamic instability [Recovered/Resolved]
  - Renal failure [Unknown]
  - Acute lung injury [Unknown]
  - Ischaemic hepatitis [Unknown]
  - Coagulopathy [Unknown]
  - General physical health deterioration [Unknown]
  - Haemorrhage [Unknown]
  - Intentional overdose [Unknown]
  - Suicidal ideation [Unknown]
  - Intentional self-injury [Unknown]
  - Toxicity to various agents [Fatal]
